FAERS Safety Report 7035716-4 (Version None)
Quarter: 2010Q4

REPORT INFORMATION
  Report Type: 
  Country: None (occurrence: None)
  Receive Date: 20101008
  Receipt Date: 20101004
  Transmission Date: 20110411
  Serious: Yes (Hospitalization)
  Sender: FDA-Public Use
  Company Number: DE-NAPPMUNDI-DEU-2010-0006578

PATIENT
  Age: 76 Year
  Sex: Male

DRUGS (8)
  1. SEVREDOL 20 MG [Suspect]
     Indication: ABDOMINAL PAIN
     Dosage: 20 MG, DAILY
     Route: 048
     Dates: start: 20100802, end: 20100814
  2. SPASMEX                            /00376202/ [Interacting]
     Indication: BENIGN PROSTATIC HYPERPLASIA
     Dosage: 5 MG, DAILY
     Route: 048
  3. DIOVAN HCT [Concomitant]
  4. GALANTAMINE HYDROBROMIDE [Concomitant]
  5. DIPIPERON [Concomitant]
  6. PANTOZOL                           /01263202/ [Concomitant]
  7. FALITHROM [Concomitant]
  8. TAMSULOSIN [Concomitant]

REACTIONS (2)
  - CONSTIPATION [None]
  - URINARY HESITATION [None]
